FAERS Safety Report 7586690-3 (Version None)
Quarter: 2011Q3

REPORT INFORMATION
  Report Type: 
  Country: None (occurrence: None)
  Receive Date: 20110701
  Receipt Date: 20110627
  Transmission Date: 20111222
  Serious: Yes (Death, Life-Threatening, Hospitalization, Other)
  Sender: FDA-Public Use
  Company Number: DE-BRISTOL-MYERS SQUIBB COMPANY-15863798

PATIENT
  Age: 37 Year
  Sex: Male

DRUGS (3)
  1. RISPERDAL CONSTA [Suspect]
     Route: 030
     Dates: start: 20110101, end: 20110119
  2. VALDOXAN [Concomitant]
     Route: 048
     Dates: start: 20101201, end: 20110201
  3. ABILIFY [Suspect]
     Dosage: 1DF=UP TO 30MG
     Route: 048
     Dates: start: 20110101, end: 20110201

REACTIONS (5)
  - GRAND MAL CONVULSION [None]
  - COMPLICATED FRACTURE [None]
  - CARDIAC ARREST [None]
  - FALL [None]
  - DEATH [None]
